FAERS Safety Report 19650582 (Version 1)
Quarter: 2021Q3

REPORT INFORMATION
  Report Type: Spontaneous
  Country: US (occurrence: US)
  Receive Date: 20210802
  Receipt Date: 20210802
  Transmission Date: 20211014
  Serious: No
  Sender: FDA-Public Use
  Company Number: None

PATIENT

DRUGS (1)
  1. SENSOR GLUCOSE VALUES WITH USE OF HYDROXYUREA MEDICATION [Suspect]
     Active Substance: HYDROXYUREA

REACTIONS (1)
  - Drug ineffective [None]
